FAERS Safety Report 10136291 (Version 1)
Quarter: 2014Q2

REPORT INFORMATION
  Report Type: Spontaneous
  Country: US (occurrence: US)
  Receive Date: 20140429
  Receipt Date: 20140429
  Transmission Date: 20141212
  Serious: Yes (Other)
  Sender: FDA-Public Use
  Company Number: US-JNJFOC-20140413816

PATIENT
  Age: 52 Year
  Sex: Male

DRUGS (1)
  1. ZYTIGA [Suspect]
     Indication: NEOPLASM MALIGNANT
     Dosage: STRENGTH 250 MG
     Route: 048
     Dates: start: 201311, end: 20140102

REACTIONS (1)
  - Urticaria [Unknown]
